FAERS Safety Report 18417816 (Version 9)
Quarter: 2021Q1

REPORT INFORMATION
  Report Type: Report from Study
  Country: None (occurrence: BE)
  Receive Date: 20201023
  Receipt Date: 20210204
  Transmission Date: 20210419
  Serious: Yes (Hospitalization, Other)
  Sender: FDA-Public Use
  Company Number: BE-ABBVIE-20K-013-3611286-00

PATIENT
  Age: 69 Year
  Sex: Female
  Weight: 68 kg

DRUGS (18)
  1. DUODOPA [Suspect]
     Active Substance: CARBIDOPA\LEVODOPA
     Dosage: MD=5ML, CD=3.2ML/HR DURING 16HRS, ED=2.5ML
     Route: 050
     Dates: start: 20201208
  2. DUODOPA [Suspect]
     Active Substance: CARBIDOPA\LEVODOPA
     Dosage: MD=10ML, CD=3.8ML/HR DURING 16HRS, ED=2.5ML
     Route: 050
     Dates: start: 202101, end: 202101
  3. DUODOPA [Suspect]
     Active Substance: CARBIDOPA\LEVODOPA
     Dosage: DOSES CONTINUOUSLY MONITORED AND ADAPTED
     Route: 050
     Dates: start: 20200515, end: 20200916
  4. DUODOPA [Suspect]
     Active Substance: CARBIDOPA\LEVODOPA
     Dosage: MD=11ML, CD=3.8ML/HR DURING 16HRS, ED=2.5ML
     Route: 050
     Dates: start: 20200916, end: 20201013
  5. DUODOPA [Suspect]
     Active Substance: CARBIDOPA\LEVODOPA
     Dosage: MD=7ML, CD=3.8ML/HR DURING 16HRS, ED=2.5ML
     Route: 050
     Dates: start: 20210114, end: 20210119
  6. DUODOPA [Suspect]
     Active Substance: CARBIDOPA\LEVODOPA
     Dosage: MD=11ML, CD=3.4ML/HR DURING 16HRS, ED=2.5ML, GRADUAL ADAPTATION OF THE DOSES.
     Route: 050
     Dates: start: 20201125, end: 20201201
  7. DUODOPA [Suspect]
     Active Substance: CARBIDOPA\LEVODOPA
     Dosage: MD=3ML, CD=3.8ML/HR DURING 16HRS, ED=2.5ML
     Route: 050
     Dates: start: 20210104, end: 202101
  8. DUODOPA [Suspect]
     Active Substance: CARBIDOPA\LEVODOPA
     Dosage: MD=8ML, CD=3.5ML/HR DURING 16HRS, ED=2ML
     Route: 050
     Dates: start: 20210112, end: 20210114
  9. PROLOPA HBS [Concomitant]
     Active Substance: BENSERAZIDE\LEVODOPA
     Indication: PARKINSON^S DISEASE
     Dosage: FORM STRENGTH: 100MG/25MG?125
     Route: 048
  10. PROLOPA HBS [Concomitant]
     Active Substance: BENSERAZIDE\LEVODOPA
     Dosage: FORM STRENGTH: 100MG/25MG
     Route: 048
  11. DUODOPA [Suspect]
     Active Substance: CARBIDOPA\LEVODOPA
     Dosage: MD=3ML, CD=3.0ML/HR DURING 16HRS, ED=2.5ML.
     Route: 050
     Dates: start: 20201201, end: 20201208
  12. DUODOPA [Suspect]
     Active Substance: CARBIDOPA\LEVODOPA
     Dosage: MD=11ML, CD=3.4ML/HR DURING 16HRS, ED=2.5ML
     Route: 050
     Dates: start: 20201013, end: 2020
  13. PROLOPA [Concomitant]
     Active Substance: BENSERAZIDE\LEVODOPA
     Indication: PARKINSON^S DISEASE
     Dosage: FORM STRENGTH: 100MG/25MG?125 DISP
     Route: 048
     Dates: end: 202011
  14. DUODOPA [Suspect]
     Active Substance: CARBIDOPA\LEVODOPA
     Indication: PARKINSON^S DISEASE
     Dosage: UNKNOWN DOSAGES
     Route: 050
     Dates: start: 20200218, end: 20200430
  15. DUODOPA [Suspect]
     Active Substance: CARBIDOPA\LEVODOPA
     Dosage: MD=11ML, CD=3.6ML/HR DURING 16HRS, ED=2.5ML
     Route: 050
     Dates: start: 20200430, end: 20200515
  16. DUODOPA [Suspect]
     Active Substance: CARBIDOPA\LEVODOPA
     Dosage: MD=5ML, CD=3.8ML/HR DURING 16HRS, ED=2.5ML
     Route: 050
     Dates: start: 202101, end: 202101
  17. DUODOPA [Suspect]
     Active Substance: CARBIDOPA\LEVODOPA
     Dosage: MD=6ML, CD=3.8ML/HR DURING 16HRS, ED=2.5ML
     Route: 050
     Dates: start: 202101, end: 20210112
  18. DUODOPA [Suspect]
     Active Substance: CARBIDOPA\LEVODOPA
     Dosage: MD=8ML, CD=3.8ML/HR DURING 16HRS, ED=2.5ML
     Route: 050
     Dates: start: 20210119

REACTIONS (12)
  - Depressed level of consciousness [Recovering/Resolving]
  - Encephalitis [Recovering/Resolving]
  - Parkinson^s disease [Unknown]
  - Agitation [Unknown]
  - Hypertonia [Unknown]
  - Herpes virus infection [Recovering/Resolving]
  - Gait inability [Unknown]
  - Seizure [Not Recovered/Not Resolved]
  - Product prescribing error [Unknown]
  - Hypophagia [Unknown]
  - Dyskinesia [Unknown]
  - Medication error [Recovered/Resolved]

NARRATIVE: CASE EVENT DATE: 2020
